FAERS Safety Report 9116403 (Version 5)
Quarter: 2013Q2

REPORT INFORMATION
  Report Type: Report from Study
  Country: JP (occurrence: JP)
  Receive Date: 20130225
  Receipt Date: 20130425
  Transmission Date: 20140414
  Serious: Yes (Disabling, Other)
  Sender: FDA-Public Use
  Company Number: JP-PFIZER INC-2013067842

PATIENT
  Age: 64 Year
  Sex: Male
  Weight: 55 kg

DRUGS (6)
  1. FOSPHENYTOIN SODIUM [Suspect]
     Indication: PROPHYLAXIS
     Dosage: 15 MG/KG, 0.9% PHYSIOLOGICAL SALINE (1:10)
     Dates: start: 20130128
  2. FOSPHENYTOIN SODIUM [Suspect]
     Dosage: 5 MG/KG, 0.9% PHYSIOLOGICAL SALINE, (1:28)
     Dates: start: 20130129
  3. FOSPHENYTOIN SODIUM [Suspect]
     Dosage: 5 MG/KG, 0.9% PHYSIOLOGICAL SALINE, (1:28)
     Dates: start: 20130130
  4. RASENAZOLIN [Concomitant]
     Indication: POSTOPERATIVE CARE
     Dosage: 2 G, UNK
     Dates: start: 20130127
  5. RADICUT [Concomitant]
     Indication: POST PROCEDURAL COMPLICATION
     Dosage: 60MG
     Dates: start: 20130128
  6. TEGRETOL [Concomitant]
     Indication: EPILEPSY
     Dosage: 400 MG, 1X/DAY
     Route: 048
     Dates: start: 20130202

REACTIONS (1)
  - Cerebral infarction [Recovered/Resolved with Sequelae]
